FAERS Safety Report 17129580 (Version 2)
Quarter: 2020Q4

REPORT INFORMATION
  Report Type: Spontaneous
  Country: US (occurrence: US)
  Receive Date: 20191209
  Receipt Date: 20201201
  Transmission Date: 20210113
  Serious: No
  Sender: FDA-Public Use
  Company Number: US-PFIZER INC-2019530914

PATIENT
  Age: 63 Year
  Sex: Female

DRUGS (30)
  1. PANTOPRAZOLE [Concomitant]
     Active Substance: PANTOPRAZOLE
     Dosage: UNK
  2. PREMARIN [Concomitant]
     Active Substance: ESTROGENS, CONJUGATED
     Dosage: 0.625 MG, 2X/DAY
     Route: 048
  3. BACLOFEN. [Concomitant]
     Active Substance: BACLOFEN
     Dosage: UNK
  4. CYCLOSPORINE. [Concomitant]
     Active Substance: CYCLOSPORINE
     Dosage: UNK
  5. ATIVAN [Concomitant]
     Active Substance: LORAZEPAM
     Dosage: 2 MG, 3X/DAY (TRY TO REDUCE NUMBER OF PILLS TAKEN PER DAY TO 0-1 DAY)
     Route: 048
  6. VITAMIN B12 [Concomitant]
     Active Substance: CYANOCOBALAMIN
     Dosage: UNK(TAKE BY MOUTH)
     Route: 048
  7. LYRICA [Suspect]
     Active Substance: PREGABALIN
     Indication: NERVE COMPRESSION
     Dosage: 50 MG, 1X/DAY (NIGHTLY)
     Route: 048
  8. LYRICA [Suspect]
     Active Substance: PREGABALIN
     Indication: FIBROMYALGIA
     Dosage: 50 MG, 3X/DAY
     Route: 048
  9. LORAZEPAM. [Concomitant]
     Active Substance: LORAZEPAM
     Dosage: UNK
  10. EXCEDRIN [CAFFEINE;PARACETAMOL] [Concomitant]
     Active Substance: ACETAMINOPHEN\CAFFEINE
     Dosage: UNK, AS NEEDED (TAKE BY MOUTH AS NEEDED)
     Route: 048
  11. DICYCLOMINE [Concomitant]
     Active Substance: DICYCLOMINE HYDROCHLORIDE
     Dosage: UNK
  12. AMLODIPINE [Concomitant]
     Active Substance: AMLODIPINE BESYLATE
     Dosage: UNK
  13. QUESTRAN [Concomitant]
     Active Substance: CHOLESTYRAMINE
     Dosage: UNK, DAILY(4 GRAM; TAKE 1 PACKET BY MOUTH DAILY FOR 90 DAYS)
     Route: 048
  14. TOPROL XL [Concomitant]
     Active Substance: METOPROLOL SUCCINATE
     Dosage: 25 MG, 2X/DAY (SWALLOW WHOLE)
     Route: 048
  15. CALCIUM + D3 [CALCIUM;COLECALCIFEROL] [Concomitant]
     Dosage: 1 DF, DAILY
     Route: 048
  16. SUDAFED [Concomitant]
     Active Substance: PSEUDOEPHEDRINE HYDROCHLORIDE
     Dosage: UNK, DAILY
     Route: 048
  17. HYDROCODONE [Concomitant]
     Active Substance: HYDROCODONE
     Dosage: UNK
  18. NORCO [Concomitant]
     Active Substance: ACETAMINOPHEN\HYDROCODONE BITARTRATE
     Indication: PAIN
     Dosage: 1 DF, AS NEEDED (TAKE 1 TABLET BY MOUTH EVERY 4 TO 6 HOURS AS NEEDED FOR PAIN)
     Route: 048
  19. CELEBREX [Concomitant]
     Active Substance: CELECOXIB
     Dosage: 200 MG, 2X/DAY
     Route: 048
  20. LIDOCAINE. [Concomitant]
     Active Substance: LIDOCAINE
     Dosage: UNK, DAILY (APPLY 3 PATCHES TOPICALLY DAILY. APPLY THREE PATCHES EXTERNALLY DAILY TOO PAINFUL AREAS)
     Route: 061
  21. NEURONTIN [Concomitant]
     Active Substance: GABAPENTIN
     Dosage: 1200 MG, 1X/DAY (TAKE 3 CAPSULES BY MOUTH EVERY EVENING)
     Route: 048
  22. BENTYL [Concomitant]
     Active Substance: DICYCLOMINE HYDROCHLORIDE
     Dosage: 20 MG, 4X/DAY (TAKE 2 CAPSULES BY MOUTH FOUR TIMES DAILY)
  23. LYRICA [Suspect]
     Active Substance: PREGABALIN
     Indication: SPINAL STENOSIS
     Dosage: 50 MG, 2X/DAY
     Route: 048
  24. NORVASC [Concomitant]
     Active Substance: AMLODIPINE BESYLATE
     Dosage: 10 MG, 1X/DAY (TAKE 10 MG BY MOUTH DAILY. TAKE THIS MEDICATION AROUND 11 AM)
     Route: 048
  25. PROTONIX [Concomitant]
     Active Substance: PANTOPRAZOLE SODIUM
     Dosage: 40 MG, 2X/DAY(TAKE 40 MG BY MOUTH TWO TIMES DAILY (BEFORE BREAKFAST AND DINNER), SWALLOW WHOLE)
     Route: 048
  26. FLEXERIL [Concomitant]
     Active Substance: CYCLOBENZAPRINE HYDROCHLORIDE
     Dosage: UNK, AS NEEDED(TAKE 0.5-1 TABLETS BY MOUTH NIGHTLY. PATIENT TAKING DIFFERENTIALLY; TAKE 5-10 MG BY M
     Route: 048
  27. SYNTHROID [Concomitant]
     Active Substance: LEVOTHYROXINE SODIUM
     Dosage: 50 UG, 1X/DAY (TAKE ONE TABLET BY MOUTH EVERY MORNING ON EMPTY STOMACH)
     Route: 048
  28. GABAPENTIN. [Concomitant]
     Active Substance: GABAPENTIN
     Dosage: UNK
  29. METOPROLOL. [Concomitant]
     Active Substance: METOPROLOL
     Dosage: UNK
  30. LIORESAL [Concomitant]
     Active Substance: BACLOFEN
     Dosage: 10 MG
     Route: 048

REACTIONS (1)
  - Illness [Unknown]
